FAERS Safety Report 7523946-4 (Version None)
Quarter: 2011Q2

REPORT INFORMATION
  Report Type: 
  Country: None (occurrence: None)
  Receive Date: 20110603
  Receipt Date: 20110523
  Transmission Date: 20111010
  Serious: Yes (Hospitalization)
  Sender: FDA-Public Use
  Company Number: CO-GENENTECH-318632

PATIENT
  Sex: Female

DRUGS (1)
  1. RITUXAN [Suspect]
     Indication: LUPUS NEPHRITIS
     Dosage: 500 MG, Q21D
     Route: 042
     Dates: start: 20100603

REACTIONS (2)
  - HYPOKALAEMIA [None]
  - DIARRHOEA [None]
